FAERS Safety Report 7772331-9 (Version None)
Quarter: 2011Q3

REPORT INFORMATION
  Report Type: 
  Country: None (occurrence: None)
  Receive Date: 20110922
  Receipt Date: 20100826
  Transmission Date: 20111222
  Serious: No
  Sender: FDA-Public Use
  Company Number: US-ASTRAZENECA-2009UW02362

PATIENT
  Age: 399 Month
  Sex: Female

DRUGS (13)
  1. SEROQUEL [Suspect]
     Indication: BIPOLAR DISORDER
     Dosage: 200MG TO 900MG
     Route: 048
     Dates: start: 19980401
  2. SEROQUEL [Suspect]
     Route: 048
     Dates: start: 20060605
  3. SEROQUEL [Suspect]
     Indication: SCHIZOPHRENIA
     Dosage: 200MG TO 900MG
     Route: 048
     Dates: start: 19980401
  4. DEPAKOTE [Concomitant]
     Dates: start: 20010720
  5. LIPITOR [Concomitant]
     Route: 048
     Dates: start: 20060605
  6. SEROQUEL [Suspect]
     Route: 048
     Dates: start: 20060605
  7. TRILAFON [Concomitant]
     Indication: DIZZINESS
     Dates: start: 20010720
  8. COGENTIN [Concomitant]
     Dates: start: 20010720
  9. COGENTIN [Concomitant]
     Route: 048
     Dates: start: 20060605
  10. TRILAFON [Concomitant]
     Route: 048
     Dates: start: 20060605
  11. ATIVAN [Concomitant]
     Dates: start: 20010720
  12. OXYCONTIN [Concomitant]
     Indication: BREAKTHROUGH PAIN
     Dosage: 60 MG EVERY 12 HOURS,15 MG AS NEEDED
     Dates: start: 20070329
  13. DEPAKOTE [Concomitant]
     Route: 048
     Dates: start: 20060605

REACTIONS (2)
  - TYPE 2 DIABETES MELLITUS [None]
  - NEURALGIA [None]
